FAERS Safety Report 13614539 (Version 1)
Quarter: 2017Q2

REPORT INFORMATION
  Report Type: Spontaneous
  Country: US (occurrence: US)
  Receive Date: 20170605
  Receipt Date: 20170605
  Transmission Date: 20170830
  Serious: No
  Sender: FDA-Public Use
  Company Number: None

PATIENT
  Age: 66 Year
  Sex: Female
  Weight: 51.75 kg

DRUGS (6)
  1. PROLIA [Suspect]
     Active Substance: DENOSUMAB
     Indication: OSTEOPOROSIS
     Dosage: QUANTITY:1 INJECTION(S);OTHER FREQUENCY:EVERY 6 MONTHS;OTHER ROUTE:INJECTED IN UPPER RIGHT ARM?
     Dates: start: 20170517
  2. NATURAL RESTRAVOL [Concomitant]
  3. ALOE CAPSULES [Concomitant]
  4. CURCUMIN [Concomitant]
     Active Substance: CURCUMIN
  5. VITAMIN C [Concomitant]
     Active Substance: ASCORBIC ACID
  6. VITAMIN/MINERAL SUPPLEMENT WITH MAGNESIUM CARBONATE, CALCIUM CARBONATE AND FOLIC ACID [Concomitant]
     Active Substance: CALCIUM CARBONATE\FOLIC ACID\MAGNESIUM CARBONATE

REACTIONS (7)
  - Pain in extremity [None]
  - Throat irritation [None]
  - Dysphonia [None]
  - Burning sensation [None]
  - Back pain [None]
  - Myalgia [None]
  - Cough [None]

NARRATIVE: CASE EVENT DATE: 20170525
